FAERS Safety Report 5975274-6 (Version None)
Quarter: 2008Q4

REPORT INFORMATION
  Report Type: 
  Country: None (occurrence: None)
  Receive Date: 20081202
  Receipt Date: 20081125
  Transmission Date: 20090506
  Serious: Yes (Other)
  Sender: FDA-Public Use
  Company Number: NL-BAYER-200829847GPV

PATIENT
  Age: 51 Year
  Sex: Male

DRUGS (3)
  1. NEXAVAR [Suspect]
     Indication: METASTATIC RENAL CELL CARCINOMA
     Dosage: TOTAL DAILY DOSE: 200 MG
     Route: 048
     Dates: start: 20081110, end: 20081125
  2. NEXAVAR [Suspect]
     Route: 048
     Dates: start: 20081125
  3. NEXAVAR [Suspect]
     Dosage: TOTAL DAILY DOSE: 800 MG
     Route: 048
     Dates: start: 20081024, end: 20081104

REACTIONS (7)
  - DRY SKIN [None]
  - DYSPHONIA [None]
  - ERYTHEMA [None]
  - PAIN IN EXTREMITY [None]
  - PALMAR-PLANTAR ERYTHRODYSAESTHESIA SYNDROME [None]
  - SWELLING FACE [None]
  - YELLOW SKIN [None]
